FAERS Safety Report 14334935 (Version 2)
Quarter: 2018Q1

REPORT INFORMATION
  Report Type: Spontaneous
  Country: US (occurrence: US)
  Receive Date: 20171229
  Receipt Date: 20180213
  Transmission Date: 20180509
  Serious: No
  Sender: FDA-Public Use
  Company Number: US-AMGEN-USASP2017191401

PATIENT
  Age: 67 Year
  Sex: Female

DRUGS (4)
  1. USTEKINUMAB [Concomitant]
     Active Substance: USTEKINUMAB
     Indication: PITYRIASIS RUBRA PILARIS
     Dosage: 45 MG, UNK
     Route: 065
  2. ETANERCEPT [Suspect]
     Active Substance: ETANERCEPT
     Indication: PITYRIASIS RUBRA PILARIS
     Dosage: 50 MG, UNK
     Route: 065
  3. ADALIMUMAB [Suspect]
     Active Substance: ADALIMUMAB
     Indication: PITYRIASIS RUBRA PILARIS
     Dosage: 40 MG, UNK
     Route: 065
  4. ACITRETIN. [Concomitant]
     Active Substance: ACITRETIN
     Dosage: 25 MG, QD
     Route: 065

REACTIONS (1)
  - Off label use [Unknown]
